FAERS Safety Report 4357178-8 (Version None)
Quarter: 2004Q2

REPORT INFORMATION
  Report Type: 
  Country: None (occurrence: None)
  Receive Date: 20040511
  Receipt Date: 20040511
  Transmission Date: 20050107
  Serious: No
  Sender: FDA-Public Use
  Company Number: None

PATIENT
  Age: 30 Year
  Sex: Female
  Weight: 77.1115 kg

DRUGS (2)
  1. DANTRIUM [Suspect]
     Dosage: 3 CAPS 4 TIMES/DAY
     Dates: start: 20040314
  2. DANTRIUM [Suspect]
     Dosage: 3 CAPS 4 TIMES /DAY

REACTIONS (1)
  - MEDICATION ERROR [None]
